FAERS Safety Report 14252176 (Version 1)
Quarter: 2017Q4

REPORT INFORMATION
  Report Type: Spontaneous
  Country: BR (occurrence: BR)
  Receive Date: 20171205
  Receipt Date: 20171205
  Transmission Date: 20180321
  Serious: Yes (Other)
  Sender: FDA-Public Use
  Company Number: BR-ARALEZ PHARMACEUTICALS R+D INC.-2017-ARA-001722

PATIENT
  Sex: Male

DRUGS (3)
  1. METOPROLOL SUCCINATE. [Suspect]
     Active Substance: METOPROLOL SUCCINATE
     Dosage: 1/2 TABLET EVERY 8 HOURS
     Route: 048
     Dates: start: 20171121
  2. METOPROLOL SUCCINATE. [Suspect]
     Active Substance: METOPROLOL SUCCINATE
     Indication: ARRHYTHMIA
     Dosage: 1/2 TABLET TWO TIMES A DAY
     Route: 048
     Dates: start: 201703, end: 2017
  3. METOPROLOL SUCCINATE. [Suspect]
     Active Substance: METOPROLOL SUCCINATE
     Dosage: 1/2 TABLET TWO TIMES A DAY
     Route: 048
     Dates: start: 201710, end: 20171121

REACTIONS (3)
  - Off label use [Recovered/Resolved]
  - Off label use [Not Recovered/Not Resolved]
  - Supraventricular tachycardia [Recovered/Resolved]

NARRATIVE: CASE EVENT DATE: 2017
